FAERS Safety Report 8851813 (Version 1)
Quarter: 2012Q4

REPORT INFORMATION
  Report Type: 
  Country: FR (occurrence: FR)
  Receive Date: 20121022
  Receipt Date: 20121022
  Transmission Date: 20130627
  Serious: No
  Sender: FDA-Public Use
  Company Number: FR-JNJFOC-20121004150

PATIENT
  Sex: Male

DRUGS (1)
  1. DUROGESIC [Suspect]
     Indication: PAIN
     Dosage: 25 + 12.5 ug/hr
     Route: 062

REACTIONS (2)
  - Wrong technique in drug usage process [Unknown]
  - Pain [Recovered/Resolved]
